FAERS Safety Report 6693840-X (Version None)
Quarter: 2010Q2

REPORT INFORMATION
  Report Type: 
  Country: None (occurrence: None)
  Receive Date: 20100423
  Receipt Date: 20100414
  Transmission Date: 20101027
  Serious: Yes (Hospitalization)
  Sender: FDA-Public Use
  Company Number: FR-ASTRAZENECA-2010SE16462

PATIENT
  Age: 82 Year
  Sex: Male

DRUGS (6)
  1. NEXIUM [Suspect]
     Route: 048
     Dates: end: 20090901
  2. CRESTOR [Suspect]
     Route: 048
     Dates: end: 20090901
  3. PERMIXON [Suspect]
     Route: 048
     Dates: end: 20090901
  4. IMOVANE [Suspect]
     Route: 048
     Dates: end: 20090901
  5. LASIX [Suspect]
     Route: 048
     Dates: end: 20090901
  6. KARDEGIC [Suspect]
     Route: 048
     Dates: end: 20090901

REACTIONS (1)
  - DRUG RASH WITH EOSINOPHILIA AND SYSTEMIC SYMPTOMS [None]
